FAERS Safety Report 7374541-1 (Version None)
Quarter: 2011Q1

REPORT INFORMATION
  Report Type: 
  Country: None (occurrence: None)
  Receive Date: 20110325
  Receipt Date: 20100226
  Transmission Date: 20110831
  Serious: Yes (Death)
  Sender: FDA-Public Use
  Company Number: US-MYLANLABS-2010S1003490

PATIENT
  Age: 51 Year
  Sex: Female
  Weight: 65.77 kg

DRUGS (4)
  1. FENTANYL-100 [Suspect]
     Indication: BACK PAIN
     Dosage: Q3D
     Route: 062
     Dates: start: 20090401, end: 20090609
  2. ROXICODONE [Concomitant]
     Indication: BACK PAIN
     Dosage: EVERY 3-4 HOURS. PATIENT REPORTEDLY USED THE 15MG TABLETS.
     Route: 048
  3. LANOXIN [Concomitant]
     Route: 048
  4. TOPROL-XL [Concomitant]
     Route: 048

REACTIONS (1)
  - ACCIDENTAL OVERDOSE [None]
